FAERS Safety Report 26048264 (Version 1)
Quarter: 2025Q4

REPORT INFORMATION
  Report Type: Report from Study
  Country: US (occurrence: US)
  Receive Date: 20251114
  Receipt Date: 20251114
  Transmission Date: 20260118
  Serious: Yes (Hospitalization)
  Sender: GILEAD
  Company Number: US-GILEAD-2025-0736123

PATIENT
  Sex: Male

DRUGS (1)
  1. AZTREONAM LYSINE [Suspect]
     Active Substance: AZTREONAM LYSINE
     Indication: Product used for unknown indication
     Dosage: 1 DOSAGE FORM, TID (1 VIAL THREE TIMES DAILY VIA NEBULIZER FOR 14 DAYS ON, 14 DAYS OFF. THEN REPE)
     Route: 055
     Dates: start: 202205

REACTIONS (3)
  - Lung disorder [Unknown]
  - Cough [Unknown]
  - Product use issue [Unknown]
